FAERS Safety Report 5174093-0 (Version None)
Quarter: 2006Q4

REPORT INFORMATION
  Report Type: 
  Country: None (occurrence: None)
  Receive Date: 20061206
  Receipt Date: 20061122
  Transmission Date: 20070319
  Serious: Yes (Hospitalization)
  Sender: FDA-Public Use
  Company Number: 1-14369601/MED-06206

PATIENT
  Age: 47 Year
  Sex: Female

DRUGS (8)
  1. BACTRIM [Suspect]
     Dosage: ORAL
     Route: 048
  2. TEMODAR [Suspect]
     Indication: GLIOBLASTOMA MULTIFORME
     Dates: start: 20060829, end: 20060925
  3. DEXAMETHASONE [Suspect]
  4. RADIATION THERAPY [Concomitant]
  5. NEULASTA [Concomitant]
  6. DIFLUCAN [Concomitant]
  7. VALTREX [Concomitant]
  8. IV ANTIBIOTICS [Concomitant]

REACTIONS (8)
  - ANORECTAL CELLULITIS [None]
  - APLASTIC ANAEMIA [None]
  - FEBRILE NEUTROPENIA [None]
  - GLIOBLASTOMA MULTIFORME [None]
  - HAEMORRHOIDS [None]
  - MALIGNANT NEOPLASM PROGRESSION [None]
  - THROMBOCYTOPENIA [None]
  - WHITE BLOOD CELL COUNT DECREASED [None]
